FAERS Safety Report 9501414 (Version 3)
Quarter: 2013Q3

REPORT INFORMATION
  Report Type: Spontaneous
  Country: US (occurrence: US)
  Receive Date: 20130905
  Receipt Date: 20130913
  Transmission Date: 20140515
  Serious: Yes (Hospitalization, Other)
  Sender: FDA-Public Use
  Company Number: US-009507513-1204USA01795

PATIENT
  Sex: Female
  Weight: 54.42 kg

DRUGS (9)
  1. FOSAMAX [Suspect]
     Indication: OSTEOPENIA
     Dosage: 70 MG, UNK
     Route: 048
     Dates: start: 200711, end: 200806
  2. ACTONEL [Suspect]
     Indication: OSTEOPENIA
     Dosage: 35 MG, QW
     Route: 048
     Dates: start: 200211, end: 200710
  3. ACTONEL [Suspect]
     Indication: OSTEOPOROSIS
  4. VITAMINS (UNSPECIFIED) [Concomitant]
     Dosage: UNK
     Route: 048
     Dates: start: 2000
  5. CALCIUM (UNSPECIFIED) (+) VITAMIN D (UNSPECIFIED) [Concomitant]
     Dosage: 400 UNK, UNK
     Route: 048
     Dates: start: 2002
  6. SYNTHROID [Concomitant]
     Indication: HYPOTHYROIDISM
  7. ALENDRONATE SODIUM [Suspect]
     Indication: OSTEOPENIA
     Dosage: 70 MG, UNK
     Route: 048
     Dates: start: 200807, end: 201004
  8. ALENDRONATE SODIUM [Suspect]
     Indication: OSTEOPOROSIS
  9. ZOCOR [Concomitant]
     Indication: HYPERLIPIDAEMIA
     Route: 048

REACTIONS (13)
  - Intramedullary rod insertion [Unknown]
  - Intramedullary rod insertion [Unknown]
  - Cardiac pacemaker insertion [Unknown]
  - Bladder cancer [Unknown]
  - Femur fracture [Unknown]
  - Femur fracture [Unknown]
  - Low turnover osteopathy [Unknown]
  - Atrial fibrillation [Unknown]
  - Cardiac failure congestive [Unknown]
  - Hypertension [Unknown]
  - Tonsillectomy [Unknown]
  - International normalised ratio increased [Unknown]
  - Osteoarthritis [Unknown]
